FAERS Safety Report 10801104 (Version 2)
Quarter: 2015Q1

REPORT INFORMATION
  Report Type: Spontaneous
  Country: US (occurrence: US)
  Receive Date: 20150216
  Receipt Date: 20150216
  Transmission Date: 20150721
  Serious: No
  Sender: FDA-Public Use
  Company Number: US-ALLERGAN-1423714US

PATIENT
  Age: 71 Year
  Sex: Female

DRUGS (1)
  1. RESTASIS [Suspect]
     Active Substance: CYCLOSPORINE
     Indication: DRY EYE
     Dosage: 2 GTT, BID
     Route: 047
     Dates: start: 20141103, end: 20141111

REACTIONS (7)
  - Photophobia [Not Recovered/Not Resolved]
  - Vision blurred [Not Recovered/Not Resolved]
  - Somnolence [Not Recovered/Not Resolved]
  - Eye pruritus [Unknown]
  - Ocular hyperaemia [Not Recovered/Not Resolved]
  - Hypersensitivity [Unknown]
  - Eye swelling [Not Recovered/Not Resolved]

NARRATIVE: CASE EVENT DATE: 201411
